FAERS Safety Report 6834764-4 (Version None)
Quarter: 2010Q3

REPORT INFORMATION
  Report Type: 
  Country: None (occurrence: None)
  Receive Date: 20100712
  Receipt Date: 20070615
  Transmission Date: 20110219
  Serious: No
  Sender: FDA-Public Use
  Company Number: US-PFIZER INC-2007031757

PATIENT
  Sex: Female
  Weight: 134.3 kg

DRUGS (1)
  1. CHANTIX [Suspect]
     Route: 048
     Dates: start: 20061204

REACTIONS (1)
  - NO ADVERSE EVENT [None]
